FAERS Safety Report 16001548 (Version 7)
Quarter: 2020Q4

REPORT INFORMATION
  Report Type: Spontaneous
  Country: CA (occurrence: CA)
  Receive Date: 20190225
  Receipt Date: 20201117
  Transmission Date: 20210113
  Serious: Yes (Other)
  Sender: FDA-Public Use
  Company Number: CA-PFIZER INC-2018522165

PATIENT
  Age: 80 Year
  Sex: Female

DRUGS (5)
  1. XELJANZ [Suspect]
     Active Substance: TOFACITINIB CITRATE
     Dosage: 5 MG, 2X/DAY (BID)
     Route: 048
     Dates: start: 20190208, end: 20190917
  2. CICLESONIDE [Concomitant]
     Active Substance: CICLESONIDE
     Indication: NASAL DISORDER
     Dosage: UNK
  3. XELJANZ [Suspect]
     Active Substance: TOFACITINIB CITRATE
     Dosage: 5 MG, 2X/DAY (BID)
     Route: 048
     Dates: start: 2019, end: 202011
  4. METFORMIN [Concomitant]
     Active Substance: METFORMIN HYDROCHLORIDE
     Dosage: UNK
  5. XELJANZ [Suspect]
     Active Substance: TOFACITINIB CITRATE
     Indication: RHEUMATOID ARTHRITIS
     Dosage: 5 MG, 2X/DAY (BID)
     Route: 048

REACTIONS (10)
  - Fall [Unknown]
  - Thrombosis [Unknown]
  - Clostridium difficile infection [Recovered/Resolved]
  - Gastrointestinal bacterial infection [Recovered/Resolved]
  - Functional gastrointestinal disorder [Unknown]
  - Post-traumatic neck syndrome [Unknown]
  - Therapeutic product effect incomplete [Recovering/Resolving]
  - Abdominal discomfort [Unknown]
  - Pain [Unknown]
  - Urinary tract infection bacterial [Recovered/Resolved]

NARRATIVE: CASE EVENT DATE: 201806
